FAERS Safety Report 21318838 (Version 1)
Quarter: 2022Q3

REPORT INFORMATION
  Report Type: Spontaneous
  Country: US (occurrence: US)
  Receive Date: 20220911
  Receipt Date: 20220911
  Transmission Date: 20221026
  Serious: No
  Sender: FDA-Public Use
  Company Number: US-SA-SAC20220823000226

PATIENT
  Age: 8 Year
  Sex: Male

DRUGS (1)
  1. DUPIXENT [Suspect]
     Active Substance: DUPILUMAB
     Dosage: 200MG,OTHER
     Route: 058
     Dates: start: 20220724

REACTIONS (1)
  - Periorbital swelling [Unknown]

NARRATIVE: CASE EVENT DATE: 20220826
